FAERS Safety Report 8062019-1 (Version None)
Quarter: 2012Q1

REPORT INFORMATION
  Report Type: 
  Country: None (occurrence: None)
  Receive Date: 20120123
  Receipt Date: 20120112
  Transmission Date: 20120608
  Serious: Yes (Other)
  Sender: FDA-Public Use
  Company Number: FR-JNJFOC-20120105219

PATIENT
  Sex: Female

DRUGS (2)
  1. REMICADE [Suspect]
     Indication: PRODUCT USED FOR UNKNOWN INDICATION
     Dosage: SEVENTH INFUSION
     Route: 042
  2. REMICADE [Suspect]
     Route: 042

REACTIONS (4)
  - DERMATITIS ALLERGIC [None]
  - TREMOR [None]
  - FEELING COLD [None]
  - INFUSION RELATED REACTION [None]
